FAERS Safety Report 8050978-2 (Version None)
Quarter: 2012Q1

REPORT INFORMATION
  Report Type: 
  Country: None (occurrence: None)
  Receive Date: 20120117
  Receipt Date: 20120110
  Transmission Date: 20120608
  Serious: Yes (Other)
  Sender: FDA-Public Use
  Company Number: PHHY2011FR106117

PATIENT
  Age: 58 Year
  Sex: Female
  Weight: 39 kg

DRUGS (5)
  1. FORADIL [Concomitant]
  2. XANAX [Concomitant]
  3. ESOMEPRAZOLE SODIUM [Concomitant]
  4. ONBREZ [Suspect]
     Indication: CHRONIC OBSTRUCTIVE PULMONARY DISEASE
     Dosage: 1 DF, UNK
     Dates: start: 20111025
  5. ISOPTIN [Concomitant]

REACTIONS (4)
  - DYSPNOEA [None]
  - VOMITING [None]
  - BRONCHOSPASM [None]
  - HEADACHE [None]
